FAERS Safety Report 6923252-2 (Version None)
Quarter: 2010Q3

REPORT INFORMATION
  Report Type: 
  Country: None (occurrence: None)
  Receive Date: 20100813
  Receipt Date: 20100806
  Transmission Date: 20110219
  Serious: Yes (Other)
  Sender: FDA-Public Use
  Company Number: JP-JNJFOC-20100802756

PATIENT
  Age: 80 Year
  Sex: Female

DRUGS (2)
  1. DUROTEP [Suspect]
     Indication: PAIN
     Route: 062
  2. CODEINE PHOSPHATE [Suspect]
     Indication: PAIN
     Route: 048

REACTIONS (1)
  - PARKINSONISM [None]
